FAERS Safety Report 8245657-2 (Version None)
Quarter: 2012Q1

REPORT INFORMATION
  Report Type: 
  Country: None (occurrence: None)
  Receive Date: 20120330
  Receipt Date: 20120321
  Transmission Date: 20120608
  Serious: No
  Sender: FDA-Public Use
  Company Number: US-BIOGENIDEC-2011BI025876

PATIENT
  Sex: Female

DRUGS (2)
  1. TYSABRI [Suspect]
     Route: 042
  2. TYSABRI [Suspect]
     Indication: MULTIPLE SCLEROSIS
     Route: 042
     Dates: start: 20090123

REACTIONS (6)
  - CEREBRAL ATROPHY [None]
  - AMNESIA [None]
  - COGNITIVE DISORDER [None]
  - MEMORY IMPAIRMENT [None]
  - TINNITUS [None]
  - WEIGHT DECREASED [None]
